FAERS Safety Report 15203712 (Version 2)
Quarter: 2018Q3

REPORT INFORMATION
  Report Type: Spontaneous
  Country: FR (occurrence: FR)
  Receive Date: 20180726
  Receipt Date: 20180828
  Transmission Date: 20181010
  Serious: Yes (Other)
  Sender: FDA-Public Use
  Company Number: FR-PFIZER INC-2018294963

PATIENT
  Age: 66 Year
  Sex: Male
  Weight: 94 kg

DRUGS (12)
  1. NEORECORMON [Suspect]
     Active Substance: ERYTHROPOIETIN
     Indication: PROPHYLACTIC CHEMOTHERAPY
     Dosage: FOLLOWING THE HB RATE
     Route: 058
     Dates: start: 201804
  2. DEXAMETHASONE. [Suspect]
     Active Substance: DEXAMETHASONE
     Indication: PLASMA CELL MYELOMA
     Dosage: 20 MG, UNK
     Route: 048
     Dates: start: 20180406, end: 20180417
  3. VELCADE [Suspect]
     Active Substance: BORTEZOMIB
     Indication: PLASMA CELL MYELOMA
     Dosage: 1.3 MG/M2
     Route: 048
     Dates: start: 20180406, end: 20180416
  4. REVLIMID [Suspect]
     Active Substance: LENALIDOMIDE
     Indication: PLASMA CELL MYELOMA
     Dosage: 25 MG, UNK
     Route: 048
     Dates: start: 20180406, end: 20180419
  5. LEDERFOLINE [Suspect]
     Active Substance: LEUCOVORIN CALCIUM
     Indication: PROPHYLACTIC CHEMOTHERAPY
     Dosage: 1 DF, WEEKLY
     Route: 048
     Dates: start: 20180406
  6. PLAVIX [Concomitant]
     Active Substance: CLOPIDOGREL BISULFATE
  7. EXFORGE [Concomitant]
     Active Substance: AMLODIPINE BESYLATE\VALSARTAN
  8. CLAMOXYL /00249601/ [Suspect]
     Active Substance: AMOXICILLIN
     Indication: PERIODONTITIS
     Dosage: UNK
     Route: 048
     Dates: start: 20180420
  9. BACTRIM [Suspect]
     Active Substance: SULFAMETHOXAZOLE\TRIMETHOPRIM
     Indication: PROPHYLACTIC CHEMOTHERAPY
     Dosage: 3 DF, WEEKLY
     Route: 048
     Dates: start: 20180406
  10. ESOMEPRAZOLE [Concomitant]
     Active Substance: ESOMEPRAZOLE
  11. ORACILLINE /00001801/ [Suspect]
     Active Substance: PENICILLIN V
     Indication: PROPHYLACTIC CHEMOTHERAPY
     Dosage: 2 DF, 1X/DAY
     Route: 048
     Dates: start: 20180406
  12. ZELITREX [Suspect]
     Active Substance: VALACYCLOVIR HYDROCHLORIDE
     Indication: PROPHYLACTIC CHEMOTHERAPY
     Dosage: 2 DF, 1X/DAY
     Route: 048
     Dates: start: 20180406

REACTIONS (2)
  - Hypersensitivity vasculitis [Recovered/Resolved]
  - Oedema peripheral [Recovered/Resolved]

NARRATIVE: CASE EVENT DATE: 20180420
